FAERS Safety Report 22381064 (Version 1)
Quarter: 2023Q2

REPORT INFORMATION
  Report Type: Spontaneous
  Country: IT (occurrence: IT)
  Receive Date: 20230530
  Receipt Date: 20230530
  Transmission Date: 20230721
  Serious: Yes (Other)
  Sender: FDA-Public Use
  Company Number: IT-MINISAL02-925497

PATIENT
  Age: 79 Year
  Sex: Male

DRUGS (3)
  1. MEROPENEM [Suspect]
     Active Substance: MEROPENEM
     Indication: Ear infection
     Dosage: UNK,(2 G OGNI 12 ORE FINO AL 5/41 G OGNI 8 ORE DAL 6/4 AL 9/4 1 G OGNI 12 ORE DAL 10/4 ALL^11/4 500
     Route: 042
     Dates: start: 20230322, end: 20230420
  2. TEICOPLANIN [Concomitant]
     Active Substance: TEICOPLANIN
     Indication: Ear infection
     Dosage: 576 MILLIGRAM (1 V DIE)
     Route: 042
     Dates: start: 20230322, end: 20230420
  3. METFORMIN HYDROCHLORIDE [Concomitant]
     Active Substance: METFORMIN HYDROCHLORIDE
     Indication: Product used for unknown indication
     Dosage: 1000 MILLIGRAM(1000 MG X 2)
     Route: 048
     Dates: end: 20230406

REACTIONS (1)
  - Drug-induced liver injury [Recovered/Resolved]

NARRATIVE: CASE EVENT DATE: 20230301
